FAERS Safety Report 21828305 (Version 2)
Quarter: 2023Q1

REPORT INFORMATION
  Report Type: Spontaneous
  Country: CH (occurrence: CH)
  Receive Date: 20230106
  Receipt Date: 20230111
  Transmission Date: 20230417
  Serious: Yes (Hospitalization, Other)
  Sender: FDA-Public Use
  Company Number: CH-SM-2022-21349

PATIENT
  Age: 73 Year
  Sex: Male

DRUGS (16)
  1. OPDIVO [Suspect]
     Active Substance: NIVOLUMAB
     Indication: Non-small cell lung cancer
     Dosage: CYCLICAL
     Route: 042
     Dates: start: 20201207, end: 20220802
  2. EUTHYROX [Concomitant]
     Active Substance: LEVOTHYROXINE SODIUM
     Indication: Product used for unknown indication
     Route: 048
  3. PHENPROCOUMON [Concomitant]
     Active Substance: PHENPROCOUMON
     Indication: Product used for unknown indication
     Dosage: DOSIERUNG GEMASS INR
     Route: 048
  4. NEBIVOLOL MEPHA [Concomitant]
     Indication: Product used for unknown indication
     Route: 048
  5. NOVALGIN (METAMIZOLE SODIUM) [Concomitant]
     Active Substance: METAMIZOLE SODIUM
     Indication: Product used for unknown indication
     Dosage: 4X 20 TROPFEN /TAG VERMUTLICH BEI BEDARF
     Route: 048
  6. PREGABALIN [Concomitant]
     Active Substance: PREGABALIN
     Indication: Product used for unknown indication
     Route: 048
  7. REMERON [Concomitant]
     Active Substance: MIRTAZAPINE
     Indication: Product used for unknown indication
     Route: 048
  8. ROSUVASTATIN CALCIUM [Concomitant]
     Active Substance: ROSUVASTATIN CALCIUM
     Indication: Product used for unknown indication
     Route: 048
  9. SERTRALINE HYDROCHLORIDE [Concomitant]
     Active Substance: SERTRALINE HYDROCHLORIDE
     Indication: Product used for unknown indication
     Route: 048
  10. TAMSULOSIN [Concomitant]
     Active Substance: TAMSULOSIN
     Indication: Product used for unknown indication
     Route: 048
  11. CHOLECALCIFEROL [Concomitant]
     Active Substance: CHOLECALCIFEROL
     Indication: Product used for unknown indication
     Route: 048
  12. OLODATEROL HYDROCHLORIDE\TIOTROPIUM BROMIDE MONOHYDRATE [Concomitant]
     Active Substance: OLODATEROL HYDROCHLORIDE\TIOTROPIUM BROMIDE MONOHYDRATE
     Indication: Product used for unknown indication
     Route: 055
     Dates: end: 202211
  13. CLOBETASOL [Concomitant]
     Active Substance: CLOBETASOL
     Indication: Product used for unknown indication
     Dosage: GESTOPPT BEI SPITALEINTRITT AM 31.10.2022 (ODER BEREITS FRUHER)
     Route: 061
     Dates: end: 20221031
  14. Betnesol [Concomitant]
     Indication: Product used for unknown indication
     Dosage: 1 DOSAGE FORM = 5 TABLETTEN IN 200ML AUFL?SEN?FOR MOUTHWASH, DISSOLVE 5 TABLETS IN 200 ML AND SPIT O
     Route: 002
  15. ATROVENT [Concomitant]
     Active Substance: IPRATROPIUM BROMIDE
     Dates: start: 202211
  16. ALBUTEROL [Concomitant]
     Active Substance: ALBUTEROL
     Dates: start: 202211

REACTIONS (6)
  - Metabolic acidosis [Recovering/Resolving]
  - Dermatitis [Recovering/Resolving]
  - Mucosal inflammation [Recovered/Resolved]
  - Pemphigoid [Recovered/Resolved]
  - Thyroiditis [Not Recovered/Not Resolved]
  - Acute kidney injury [Unknown]

NARRATIVE: CASE EVENT DATE: 20210101
